FAERS Safety Report 23087529 (Version 1)
Quarter: 2023Q4

REPORT INFORMATION
  Report Type: Spontaneous
  Country: US (occurrence: US)
  Receive Date: 20231020
  Receipt Date: 20231020
  Transmission Date: 20240109
  Serious: No
  Sender: FDA-Public Use
  Company Number: US-TEVA-2023-US-2932833

PATIENT
  Age: 36 Year
  Sex: Male

DRUGS (1)
  1. BUPRENORPHINE [Suspect]
     Active Substance: BUPRENORPHINE
     Indication: Product used for unknown indication
     Route: 060

REACTIONS (3)
  - Chemical burn of oral cavity [Not Recovered/Not Resolved]
  - Wrong technique in product usage process [Unknown]
  - Discomfort [Unknown]
